FAERS Safety Report 9027454 (Version 2)
Quarter: 2013Q1

REPORT INFORMATION
  Report Type: Spontaneous
  Country: IT (occurrence: IT)
  Receive Date: 20130124
  Receipt Date: 20130208
  Transmission Date: 20140127
  Serious: Yes (Hospitalization, Other)
  Sender: FDA-Public Use
  Company Number: IT-BRISTOL-MYERS SQUIBB COMPANY-17300120

PATIENT
  Age: 76 Year
  Sex: Male

DRUGS (5)
  1. COUMADIN TABS 5 MG [Suspect]
     Indication: ATRIAL FIBRILLATION
     Route: 048
     Dates: start: 20000101, end: 20110724
  2. CARDIOASPIRIN [Suspect]
     Route: 048
  3. ENANTONE [Concomitant]
  4. LASITONE [Concomitant]
     Dosage: TABS
  5. FULCROSUPRA [Concomitant]

REACTIONS (3)
  - Subarachnoid haemorrhage [Recovering/Resolving]
  - Head injury [Unknown]
  - Fall [Unknown]
